FAERS Safety Report 9424762 (Version 4)
Quarter: 2015Q3

REPORT INFORMATION
  Report Type: Spontaneous
  Country: BR (occurrence: BR)
  Receive Date: 20130729
  Receipt Date: 20150722
  Transmission Date: 20151125
  Serious: Yes (Hospitalization, Other)
  Sender: FDA-Public Use
  Company Number: BR-PFIZER INC-2013218170

PATIENT
  Age: 59 Year
  Sex: Male
  Weight: 73 kg

DRUGS (15)
  1. GLIFAGE XR [Concomitant]
     Active Substance: METFORMIN HYDROCHLORIDE
     Indication: DIABETES MELLITUS
     Dosage: UNK
     Dates: start: 2007
  2. DAFLON [Concomitant]
     Active Substance: DIOSMIN\HESPERIDIN
     Indication: OEDEMA
     Dosage: AS REQUIRED
  3. ATENOLOL. [Suspect]
     Active Substance: ATENOLOL
     Dosage: 25 MG, UNK
     Dates: start: 2013
  4. CRESTOR [Suspect]
     Active Substance: ROSUVASTATIN CALCIUM
     Indication: BLOOD CHOLESTEROL INCREASED
     Dosage: 10 MG, ALTERNATE DAY
     Route: 048
     Dates: start: 2011, end: 201312
  5. CRESTOR [Suspect]
     Active Substance: ROSUVASTATIN CALCIUM
     Dosage: 5 MG, 1X/DAY
     Route: 048
     Dates: start: 201312
  6. ALPHAGAN P [Concomitant]
     Active Substance: BRIMONIDINE TARTRATE
     Indication: INTRAOCULAR PRESSURE TEST
     Dosage: TWO TIMES A DAY
     Dates: start: 2004
  7. ATENOLOL. [Suspect]
     Active Substance: ATENOLOL
     Dosage: 25 MG, DAILY
     Route: 048
     Dates: start: 2003
  8. CRESTOR [Suspect]
     Active Substance: ROSUVASTATIN CALCIUM
     Indication: BLOOD TRIGLYCERIDES INCREASED
     Dosage: 10 MG, DAILY
     Route: 048
     Dates: start: 200812, end: 2011
  9. ASA [Concomitant]
     Active Substance: ASPIRIN
     Dosage: UNK
     Dates: start: 2004
  10. PLAVIX [Concomitant]
     Active Substance: CLOPIDOGREL BISULFATE
     Indication: THROMBOSIS PROPHYLAXIS
     Dosage: UNK
     Dates: start: 2004, end: 2005
  11. ARADOIS [Concomitant]
     Active Substance: LOSARTAN POTASSIUM
     Dosage: DAILY
     Dates: start: 2008
  12. LESCOL [Concomitant]
     Active Substance: FLUVASTATIN SODIUM
     Dosage: UNK
     Dates: end: 200812
  13. BRILINTA [Suspect]
     Active Substance: TICAGRELOR
     Indication: ACUTE MYOCARDIAL INFARCTION
     Dosage: 90 MG, 2X/DAY
     Route: 048
     Dates: start: 201307
  14. PLAVIX [Concomitant]
     Active Substance: CLOPIDOGREL BISULFATE
     Dosage: UNK
     Route: 065
     Dates: start: 200811, end: 201307
  15. PLAVIX [Concomitant]
     Active Substance: CLOPIDOGREL BISULFATE
     Dosage: UNK
     Dates: start: 2013

REACTIONS (16)
  - Blood cholesterol decreased [Recovered/Resolved]
  - Acute myocardial infarction [Recovered/Resolved]
  - Chest pain [Recovered/Resolved]
  - Intraocular pressure increased [Recovering/Resolving]
  - Drug effect increased [Unknown]
  - Drug ineffective [Unknown]
  - Diabetes mellitus [Recovered/Resolved]
  - Infarction [Recovered/Resolved]
  - Device occlusion [Recovered/Resolved]
  - Pain [Unknown]
  - Coronary artery occlusion [Recovered/Resolved]
  - Blood cholesterol decreased [Unknown]
  - Helicobacter gastritis [Unknown]
  - Gastric haemorrhage [Unknown]
  - Weight decreased [Recovering/Resolving]
  - Syncope [Unknown]

NARRATIVE: CASE EVENT DATE: 2004
